FAERS Safety Report 10149841 (Version 1)
Quarter: 2014Q2

REPORT INFORMATION
  Report Type: Report from Study
  Country: VE (occurrence: VE)
  Receive Date: 20140502
  Receipt Date: 20140502
  Transmission Date: 20141212
  Serious: Yes (Other)
  Sender: FDA-Public Use
  Company Number: VE-SA-2014SA056854

PATIENT
  Age: 16 Year
  Sex: Male
  Weight: 26 kg

DRUGS (1)
  1. MYOZYME [Suspect]
     Indication: GLYCOGEN STORAGE DISEASE TYPE II
     Dosage: DOSE : 12 AMPOULES WEEKLY
     Route: 042

REACTIONS (4)
  - Pseudomonas infection [Unknown]
  - Klebsiella infection [Unknown]
  - Convulsion [Unknown]
  - Myoclonus [Unknown]
